FAERS Safety Report 5113869-2 (Version None)
Quarter: 2006Q3

REPORT INFORMATION
  Report Type: 
  Country: None (occurrence: None)
  Receive Date: 20060925
  Receipt Date: 20060808
  Transmission Date: 20061208
  Serious: Yes (Hospitalization)
  Sender: FDA-Public Use
  Company Number: PHBS2006ES12109

PATIENT
  Age: 61 Year
  Sex: Female

DRUGS (7)
  1. CARBAMAZEPINE [Suspect]
     Indication: NEURALGIA
     Dosage: 1200 MG/DAY
     Route: 065
  2. METHADONE (NGX) [Suspect]
     Indication: BONE PAIN
     Dosage: 120 MG/DAY
     Route: 065
  3. METHADONE (NGX) [Suspect]
     Dosage: 160 MG/DAY
     Route: 065
  4. METHADONE (NGX) [Suspect]
     Dosage: 75 MG/DAY
     Route: 065
  5. METHADONE (NGX) [Suspect]
     Dosage: 210 MG/DAY
     Route: 065
  6. GABAPENTIN [Concomitant]
     Dosage: 1800 MG/DAY
     Route: 065
  7. MORPHINE [Concomitant]
     Indication: BONE PAIN

REACTIONS (8)
  - DRUG INTERACTION [None]
  - DRUG TOXICITY [None]
  - DRUG WITHDRAWAL SYNDROME [None]
  - LOSS OF CONSCIOUSNESS [None]
  - OXYGEN SATURATION DECREASED [None]
  - RESPIRATORY DEPRESSION [None]
  - RESPIRATORY RATE DECREASED [None]
  - SEDATION [None]
